FAERS Safety Report 6904497-4 (Version None)
Quarter: 2010Q3

REPORT INFORMATION
  Report Type: 
  Country: None (occurrence: None)
  Receive Date: 20100804
  Receipt Date: 20090604
  Transmission Date: 20110219
  Serious: No
  Sender: FDA-Public Use
  Company Number: US-PFIZER INC-2009179691

PATIENT
  Sex: Female
  Weight: 68 kg

DRUGS (9)
  1. LYRICA [Suspect]
     Indication: FIBROMYALGIA
     Dosage: 50 MG, 2X/DAY
     Dates: start: 20090305
  2. ZYRTEC [Concomitant]
     Dosage: UNK
  3. DILTIAZEM [Concomitant]
     Dosage: UNK
  4. OMEPRAZOLE [Concomitant]
     Dosage: UNK
  5. PROPACET 100 [Concomitant]
     Dosage: UNK
  6. CELEBREX [Concomitant]
     Dosage: UNK
  7. LORAZEPAM [Concomitant]
     Dosage: UNK
  8. CYCLOBENZAPRINE [Concomitant]
     Dosage: UNK
  9. CYMBALTA [Concomitant]
     Dosage: UNK

REACTIONS (3)
  - ABNORMAL SENSATION IN EYE [None]
  - DIZZINESS [None]
  - SPEECH DISORDER [None]
